FAERS Safety Report 5330597-9 (Version None)
Quarter: 2007Q2

REPORT INFORMATION
  Report Type: 
  Country: None (occurrence: None)
  Receive Date: 20070516
  Receipt Date: 20070508
  Transmission Date: 20071010
  Serious: Yes (Other)
  Sender: FDA-Public Use
  Company Number: GXKR2007GB04122

PATIENT
  Sex: Male
  Weight: 91 kg

DRUGS (10)
  1. OMEPRAZOLE [Suspect]
     Indication: HIATUS HERNIA
     Dosage: 20 MG, QD, ORAL
     Route: 048
     Dates: start: 20050324
  2. AMITRIPTYLINE HCL [Concomitant]
  3. ASPIRIN [Concomitant]
  4. GLYCERYL TRINITRATE (GLYCERYL TRINITRATE) [Concomitant]
  5. IKOREL (NICORANDIL) [Concomitant]
  6. LIPITOR [Concomitant]
  7. SLOZEM (DILTIAZEM HYDROCHLORIDE) [Concomitant]
  8. TAMSULOSIN HCL [Concomitant]
  9. STEROIDS NOS (NO INGREDIENTS/SUBSTANCES) [Concomitant]
  10. BETA-2 AGNOSTIC INHALER [Concomitant]

REACTIONS (4)
  - AXILLARY PAIN [None]
  - BREAST PAIN [None]
  - BREAST SWELLING [None]
  - PAIN [None]
